FAERS Safety Report 22160346 (Version 1)
Quarter: 2023Q1

REPORT INFORMATION
  Report Type: Report from Study
  Country: GB (occurrence: GB)
  Receive Date: 20230331
  Receipt Date: 20230331
  Transmission Date: 20230418
  Serious: Yes (Other)
  Sender: FDA-Public Use
  Company Number: GB-SAMSUNG BIOEPIS-SB-2023-08435

PATIENT
  Sex: Female

DRUGS (1)
  1. ETANERCEPT [Suspect]
     Active Substance: ETANERCEPT
     Indication: Spinal osteoarthritis
     Route: 058
     Dates: start: 20181108

REACTIONS (3)
  - COVID-19 [Unknown]
  - Lower respiratory tract infection [Unknown]
  - Product use in unapproved indication [Unknown]
